FAERS Safety Report 19892816 (Version 1)
Quarter: 2021Q3

REPORT INFORMATION
  Report Type: Spontaneous
  Country: US (occurrence: US)
  Receive Date: 20210929
  Receipt Date: 20210929
  Transmission Date: 20211014
  Serious: No
  Sender: FDA-Public Use
  Company Number: US-TOLMAR, INC.-21US028446

PATIENT
  Age: 8 Year
  Sex: Female

DRUGS (1)
  1. FENSOLVI [Suspect]
     Active Substance: LEUPROLIDE ACETATE
     Indication: PRECOCIOUS PUBERTY
     Dosage: 45 MILLIGRAM
     Dates: start: 20210615

REACTIONS (5)
  - Precocious puberty [Not Recovered/Not Resolved]
  - Syringe issue [Unknown]
  - Intercepted product preparation error [Unknown]
  - Product dose omission issue [Not Recovered/Not Resolved]
  - Device leakage [Unknown]

NARRATIVE: CASE EVENT DATE: 20210615
